FAERS Safety Report 6775480-7 (Version None)
Quarter: 2010Q2

REPORT INFORMATION
  Report Type: 
  Country: None (occurrence: None)
  Receive Date: 20100617
  Receipt Date: 20100519
  Transmission Date: 20101027
  Serious: Yes (Other)
  Sender: FDA-Public Use
  Company Number: PHHY2010DE26120

PATIENT
  Age: 70 Year
  Sex: Male
  Weight: 95 kg

DRUGS (2)
  1. EXFORGE [Suspect]
     Indication: HYPERTENSION
     Dosage: 1 DF IN THE EVENING
     Route: 048
     Dates: start: 20091101, end: 20100401
  2. EXFORGE HCT [Suspect]
     Indication: HYPERTENSION
     Dosage: 1 TABLET (160/12.5/5) IN THE MORNING
     Route: 048
     Dates: start: 20091101, end: 20100401

REACTIONS (5)
  - ERYTHEMA [None]
  - LACRIMAL DISORDER [None]
  - PHOTOSENSITIVITY ALLERGIC REACTION [None]
  - PRURITUS [None]
  - SWELLING FACE [None]
